FAERS Safety Report 17657821 (Version 1)
Quarter: 2020Q2

REPORT INFORMATION
  Report Type: Spontaneous
  Country: US (occurrence: US)
  Receive Date: 20200411
  Receipt Date: 20200411
  Transmission Date: 20200713
  Serious: Yes (Hospitalization)
  Sender: FDA-Public Use
  Company Number: US-ASTRAZENECA-2020SE28520

PATIENT
  Age: 8 Month
  Sex: Male

DRUGS (4)
  1. FLU SHOT [Concomitant]
     Active Substance: INFLUENZA VIRUS VACCINE
  2. SYNAGIS [Suspect]
     Active Substance: PALIVIZUMAB
     Indication: RESPIRATORY SYNCYTIAL VIRUS INFECTION
     Dosage: 100 MG/VL, 50 MG/VL, 15 MG/KG MONTHLY
     Route: 030
     Dates: start: 20191210, end: 20200330
  3. BACTROBAN [Concomitant]
     Active Substance: MUPIROCIN\MUPIROCIN CALCIUM
     Dosage: 2 TIMES DAILY TO EACH NOSTRIL FOR 5 DAYS
     Route: 061
     Dates: start: 20200212, end: 20200217
  4. SYNAGIS [Suspect]
     Active Substance: PALIVIZUMAB
     Indication: FALLOT^S TETRALOGY
     Dosage: 100 MG/VL, 50 MG/VL, 15 MG/KG MONTHLY
     Route: 030
     Dates: start: 20191210, end: 20200330

REACTIONS (3)
  - Therapeutic product effect incomplete [Unknown]
  - Respiratory syncytial virus infection [Unknown]
  - Respiratory syncytial virus bronchiolitis [Unknown]
